FAERS Safety Report 22077976 (Version 1)
Quarter: 2023Q1

REPORT INFORMATION
  Report Type: Spontaneous
  Country: US (occurrence: None)
  Receive Date: 20230308
  Receipt Date: 20230308
  Transmission Date: 20230417
  Serious: No
  Sender: FDA-Public Use
  Company Number: None

PATIENT
  Age: 52 Year
  Sex: Male
  Weight: 68.4 kg

DRUGS (4)
  1. ADAKVEO [Suspect]
     Active Substance: CRIZANLIZUMAB-TMCA
     Dosage: FREQUENCY : MONTHLY;?
     Route: 042
  2. HYDROXYUREA [Concomitant]
     Active Substance: HYDROXYUREA
  3. OXBRYTA [Concomitant]
     Active Substance: VOXELOTOR
  4. DEFERASIROX [Concomitant]
     Active Substance: DEFERASIROX

REACTIONS (2)
  - Joint swelling [None]
  - Skin discolouration [None]

NARRATIVE: CASE EVENT DATE: 20220815
